FAERS Safety Report 7424016-6 (Version None)
Quarter: 2011Q2

REPORT INFORMATION
  Report Type: 
  Country: None (occurrence: None)
  Receive Date: 20110419
  Receipt Date: 20110324
  Transmission Date: 20111010
  Serious: No
  Sender: FDA-Public Use
  Company Number: US-B.I. PHARMACEUTICALS,INC./RIDGEFIELD-2011-BP-09176BP

PATIENT
  Sex: Male

DRUGS (6)
  1. FISH OIL [Concomitant]
     Indication: PROPHYLAXIS
     Route: 048
  2. GEMFIBROZIL [Concomitant]
     Indication: BLOOD TRIGLYCERIDES INCREASED
     Dosage: 1200 MG
     Route: 048
  3. METOPROLOL [Concomitant]
     Indication: HYPERTENSION
     Dosage: 50 MG
     Route: 048
     Dates: start: 20110201
  4. LOVASTATIN [Concomitant]
     Indication: BLOOD CHOLESTEROL INCREASED
     Dosage: 40 MG
     Route: 048
  5. PRADAXA [Suspect]
     Indication: ATRIAL FIBRILLATION
     Dosage: 300 MG
     Route: 048
     Dates: start: 20110201
  6. CILOSTAZOL [Concomitant]
     Dosage: 50 MG
     Route: 048
     Dates: start: 20110201

REACTIONS (3)
  - DIZZINESS POSTURAL [None]
  - MELAENA [None]
  - HAEMATURIA [None]
